FAERS Safety Report 25368440 (Version 2)
Quarter: 2025Q2

REPORT INFORMATION
  Report Type: Spontaneous
  Country: ES (occurrence: ES)
  Receive Date: 20250528
  Receipt Date: 20250602
  Transmission Date: 20250717
  Serious: Yes (Death, Other)
  Sender: MYLAN
  Company Number: ES-MYLANLABS-2024M1027926

PATIENT
  Age: 80 Year
  Sex: Male

DRUGS (3)
  1. EPLERENONE [Suspect]
     Active Substance: EPLERENONE
     Indication: Cardiac amyloidosis
  2. TAFAMIDIS [Suspect]
     Active Substance: TAFAMIDIS
     Indication: Cardiac amyloidosis
     Dates: start: 20240208, end: 20240311
  3. TAFAMIDIS [Suspect]
     Active Substance: TAFAMIDIS

REACTIONS (10)
  - Cardiac failure [Fatal]
  - Renal impairment [Recovered/Resolved]
  - Hyperbilirubinaemia [Unknown]
  - Hyperkalaemia [Unknown]
  - Malaise [Unknown]
  - Dizziness [Unknown]
  - Fatigue [Unknown]
  - Dyspnoea [Unknown]
  - Orthopnoea [Unknown]
  - Pleural effusion [Unknown]

NARRATIVE: CASE EVENT DATE: 20240301
